FAERS Safety Report 7617309-0 (Version None)
Quarter: 2011Q3

REPORT INFORMATION
  Report Type: 
  Country: None (occurrence: None)
  Receive Date: 20110718
  Receipt Date: 20110707
  Transmission Date: 20111222
  Serious: No
  Sender: FDA-Public Use
  Company Number: PHHY2011US43916

PATIENT
  Sex: Female

DRUGS (1)
  1. TASIGNA [Suspect]
     Indication: CHRONIC MYELOID LEUKAEMIA
     Dosage: 300 MG, BID
     Route: 048
     Dates: start: 20110120

REACTIONS (7)
  - DRY SKIN [None]
  - HYPOTHYROIDISM [None]
  - PRURITUS [None]
  - ALOPECIA [None]
  - RASH [None]
  - COUGH [None]
  - NEOPLASM SKIN [None]
